FAERS Safety Report 7565858-6 (Version None)
Quarter: 2011Q2

REPORT INFORMATION
  Report Type: 
  Country: None (occurrence: None)
  Receive Date: 20110623
  Receipt Date: 20110620
  Transmission Date: 20111010
  Serious: No
  Sender: FDA-Public Use
  Company Number: US-PFIZER INC-2011136451

PATIENT
  Age: 54 Year
  Sex: Male
  Weight: 102.4 kg

DRUGS (3)
  1. CORTISONE [Concomitant]
     Dosage: UNK
  2. ADVIL LIQUI-GELS [Suspect]
     Dosage: 200MG TWICE DAILY
     Route: 048
     Dates: start: 20110601
  3. AVAPRO [Interacting]
     Dosage: UNK

REACTIONS (3)
  - RASH [None]
  - DRUG INTERACTION [None]
  - PRURITUS [None]
